FAERS Safety Report 5016324-3 (Version None)
Quarter: 2006Q2

REPORT INFORMATION
  Report Type: 
  Country: None (occurrence: None)
  Receive Date: 20060526
  Receipt Date: 20060510
  Transmission Date: 20061013
  Serious: Yes (Hospitalization)
  Sender: FDA-Public Use
  Company Number: JP200605002814

PATIENT
  Age: 58 Year
  Sex: Male

DRUGS (4)
  1. GEMZAR [Suspect]
     Indication: PANCREATIC CARCINOMA
     Dosage: INTRAVENOUS
     Route: 042
  2. KYTRIL - FOR INFUSION (GRANISETRON HYDROCHLORIDE) INFUSION [Concomitant]
  3. DECADRON (DEXAMETHASONE SODIUM PHOSPHATE) INJECTION [Concomitant]
  4. RINDERON (BETAMETHASONE) TABLET [Concomitant]

REACTIONS (1)
  - PERIPHERAL MOTOR NEUROPATHY [None]
